FAERS Safety Report 19415751 (Version 1)
Quarter: 2021Q2

REPORT INFORMATION
  Report Type: Spontaneous
  Country: US (occurrence: US)
  Receive Date: 20210615
  Receipt Date: 20210615
  Transmission Date: 20210717
  Serious: Yes (Other)
  Sender: FDA-Public Use
  Company Number: US-ALLERGAN-2033310US

PATIENT
  Sex: Female

DRUGS (1)
  1. KYBELLA [Suspect]
     Active Substance: DEOXYCHOLIC ACID
     Indication: LIPOLYSIS PROCEDURE
     Dosage: 0.2 ML, SINGLE
     Route: 058
     Dates: start: 20200818, end: 20200818

REACTIONS (9)
  - Skin ulcer [Recovering/Resolving]
  - Injection site discolouration [Unknown]
  - Product preparation error [Unknown]
  - Injection site pustule [Unknown]
  - Injection site necrosis [Recovering/Resolving]
  - Injection site bruising [Recovered/Resolved]
  - Erythema [Recovering/Resolving]
  - Injection site pain [Unknown]
  - Injection site scab [Unknown]
